FAERS Safety Report 5655680-X (Version None)
Quarter: 2008Q1

REPORT INFORMATION
  Report Type: 
  Country: None (occurrence: None)
  Receive Date: 20080307
  Receipt Date: 20080229
  Transmission Date: 20080703
  Serious: No
  Sender: FDA-Public Use
  Company Number: US-BAXTER-2008BH000483

PATIENT
  Age: 50 Year
  Sex: Male
  Weight: 76 kg

DRUGS (23)
  1. HEPARIN SODIUM [Suspect]
     Indication: THROMBOSIS PROPHYLAXIS
     Route: 042
     Dates: start: 20071231, end: 20071231
  2. HEPARIN SODIUM [Suspect]
     Route: 042
     Dates: start: 20071231, end: 20071231
  3. HEPARIN SODIUM [Suspect]
     Route: 042
     Dates: start: 20071231, end: 20071231
  4. HEPARIN SODIUM [Suspect]
     Route: 042
     Dates: start: 20071231, end: 20071231
  5. HEPARIN SODIUM [Suspect]
     Route: 042
     Dates: start: 20071231, end: 20071231
  6. HEPARIN SODIUM [Suspect]
     Route: 042
     Dates: start: 20071231, end: 20071231
  7. HEPARIN SODIUM [Suspect]
     Route: 042
     Dates: start: 20071231, end: 20071231
  8. HEPARIN SODIUM [Suspect]
     Route: 042
     Dates: start: 20071231, end: 20071231
  9. HEPARIN SODIUM [Suspect]
     Route: 042
     Dates: start: 20071231, end: 20071231
  10. HEPARIN SODIUM [Suspect]
     Route: 042
     Dates: start: 20071231, end: 20071231
  11. HEPARIN SODIUM [Suspect]
     Route: 042
     Dates: start: 20071231, end: 20071231
  12. HEPARIN SODIUM [Suspect]
     Route: 042
     Dates: start: 20071231, end: 20071231
  13. HEPARIN SODIUM [Suspect]
     Route: 042
     Dates: start: 20071231, end: 20071231
  14. HEPARIN SODIUM [Suspect]
     Route: 042
     Dates: start: 20071231, end: 20071231
  15. HEPARIN SODIUM [Suspect]
     Route: 042
     Dates: start: 20071231, end: 20071231
  16. HEPARIN SODIUM [Suspect]
     Route: 042
     Dates: start: 20071231, end: 20071231
  17. SODIUM CHLORIDE [Concomitant]
     Indication: HAEMODIALYSIS
     Dosage: DOSE UNIT:UNKNOWN
     Route: 065
  18. FOLIC ACID [Concomitant]
     Indication: DRUG USE FOR UNKNOWN INDICATION
     Route: 065
  19. COZAAR [Concomitant]
     Indication: DRUG USE FOR UNKNOWN INDICATION
     Route: 065
  20. PREVACID [Concomitant]
     Indication: DRUG USE FOR UNKNOWN INDICATION
     Route: 065
  21. NORVASC [Concomitant]
     Indication: DRUG USE FOR UNKNOWN INDICATION
     Route: 065
  22. ZOCOR [Concomitant]
     Indication: DRUG USE FOR UNKNOWN INDICATION
     Route: 065
  23. REGLAN [Concomitant]
     Indication: DRUG USE FOR UNKNOWN INDICATION
     Route: 065

REACTIONS (7)
  - CATHETER THROMBOSIS [None]
  - DYSPNOEA [None]
  - FEELING HOT [None]
  - FLUSHING [None]
  - HEADACHE [None]
  - MUSCLE SPASMS [None]
  - OCULAR HYPERAEMIA [None]
